FAERS Safety Report 25335072 (Version 3)
Quarter: 2025Q3

REPORT INFORMATION
  Report Type: Spontaneous
  Country: US (occurrence: US)
  Receive Date: 20250520
  Receipt Date: 20250810
  Transmission Date: 20251021
  Serious: No
  Sender: ALEXION PHARMACEUTICALS
  Company Number: US-AstraZeneca-CH-00865899AP

PATIENT
  Age: 85 Year
  Sex: Female

DRUGS (1)
  1. BYDUREON BCISE [Suspect]
     Active Substance: EXENATIDE
     Indication: Diabetes mellitus
     Dosage: UNK UNK, QW
     Route: 065

REACTIONS (6)
  - Adverse event [Unknown]
  - Device leakage [Unknown]
  - Device delivery system issue [Unknown]
  - Eye irritation [Unknown]
  - Pain [Unknown]
  - Device malfunction [Unknown]

NARRATIVE: CASE EVENT DATE: 20250508
